FAERS Safety Report 11991796 (Version 1)
Quarter: 2016Q1

REPORT INFORMATION
  Report Type: Spontaneous
  Country: US (occurrence: US)
  Receive Date: 20160203
  Receipt Date: 20160203
  Transmission Date: 20160526
  Serious: No
  Sender: FDA-Public Use
  Company Number: US-JNJFOC-20160101702

PATIENT
  Age: 50 Year
  Sex: Female
  Weight: 63.5 kg

DRUGS (2)
  1. ANTIBIOTICS [Concomitant]
     Active Substance: UNSPECIFIED INGREDIENT
     Indication: EAR INFECTION
     Route: 065
     Dates: start: 20151223
  2. SUDAFED 12 HOUR [Suspect]
     Active Substance: PSEUDOEPHEDRINE HYDROCHLORIDE
     Indication: SINUSITIS
     Dosage: TOOK EACH DOSE AT LEAST 12 HOURS APART( EARLIER IN THE AFTERNOON OR MORNING EACH??DAY)
     Route: 048

REACTIONS (3)
  - Off label use [Recovered/Resolved]
  - Insomnia [Recovered/Resolved]
  - Product use issue [Recovered/Resolved]
